FAERS Safety Report 4556593-7 (Version None)
Quarter: 2005Q1

REPORT INFORMATION
  Report Type: 
  Country: None (occurrence: None)
  Receive Date: 20050118
  Receipt Date: 20050106
  Transmission Date: 20050727
  Serious: Yes (Other)
  Sender: FDA-Public Use
  Company Number: 2005007959

PATIENT
  Age: 59 Year
  Sex: Female
  Weight: 62.1428 kg

DRUGS (4)
  1. SPIRONOLACTON (SPIRONOLACTONE) [Suspect]
     Indication: HYPERTENSION
     Dosage: 25 MG (25 MG, DAILY), ORAL
     Route: 048
     Dates: start: 20041201, end: 20041201
  2. FOSINOPRIL SODIUM [Concomitant]
  3. VALSARATN (VALSARTAN) [Concomitant]
  4. VITAMINS (VITAMINS) [Concomitant]

REACTIONS (5)
  - ALOPECIA [None]
  - LUPUS NEPHRITIS [None]
  - LUPUS-LIKE SYNDROME [None]
  - OEDEMA [None]
  - RED BLOOD CELLS URINE POSITIVE [None]
